FAERS Safety Report 19183038 (Version 1)
Quarter: 2021Q2

REPORT INFORMATION
  Report Type: Spontaneous
  Country: FR (occurrence: FR)
  Receive Date: 20210427
  Receipt Date: 20210427
  Transmission Date: 20210717
  Serious: Yes (Hospitalization)
  Sender: FDA-Public Use
  Company Number: FR-TEVA-2021-FR-1904003

PATIENT
  Age: 42 Year
  Sex: Male
  Weight: 103 kg

DRUGS (22)
  1. DROPERIDOL. [Concomitant]
     Active Substance: DROPERIDOL
     Route: 042
     Dates: start: 20190125, end: 20190127
  2. SERESTA [Concomitant]
     Active Substance: OXAZEPAM
     Dosage: SEE COMMENT
     Route: 048
  3. MOVICOL [Concomitant]
     Active Substance: POLYETHYLENE GLYCOL 3350\POTASSIUM CHLORIDE\SODIUM BICARBONATE\SODIUM CHLORIDE
     Dosage: 1DOSAGEFORM
     Route: 048
     Dates: start: 20190124
  4. METHADONE AP?HP [Concomitant]
     Active Substance: METHADONE HYDROCHLORIDE
     Dosage: 60MILLIGRAM
     Route: 048
  5. SERETIDE [Concomitant]
     Active Substance: FLUTICASONE PROPIONATE\SALMETEROL XINAFOATE
     Dosage: 4 DOSAGE FORMS DAILY; 2?0?2
     Route: 055
  6. OXYCODONE [Concomitant]
     Active Substance: OXYCODONE
     Dosage: 40MILLIGRAM
     Route: 048
  7. SEEBRI BREEZHALER [Concomitant]
     Active Substance: GLYCOPYRROLATE
     Dosage: SEE COMMENT
     Route: 055
  8. ESOMEPRAZOLE. [Concomitant]
     Active Substance: ESOMEPRAZOLE MAGNESIUM
     Dosage: SEE COMMENT
     Route: 048
  9. KETAMINE [Concomitant]
     Active Substance: KETAMINE
     Route: 042
     Dates: start: 20190125, end: 20190126
  10. LOVENOX [Concomitant]
     Active Substance: ENOXAPARIN SODIUM
     Dosage: 4000IU
     Route: 058
     Dates: start: 20190125, end: 20190127
  11. MIANSERINE (CHLORHYDRATE DE) [Concomitant]
     Active Substance: MIANSERIN HYDROCHLORIDE
     Dosage: 60MILLIGRAM
     Route: 048
  12. PREGABALINE [Concomitant]
     Active Substance: PREGABALIN
     Dosage: 150MILLIGRAM
     Route: 048
     Dates: start: 20190125, end: 20190128
  13. NORMACOL LAVEMENT ADULTES, SOLUTION RECTALE, RECIPIENT UNIDOSE [Concomitant]
     Dosage: SINGLE?DOSE CONTAINER:UNIT DOSE:1DOSAGEFORM
     Route: 054
     Dates: start: 20190125, end: 20190211
  14. EDUCTYL ADULTES, SUPPOSITOIRE EFFERVESCENT [Concomitant]
     Active Substance: POTASSIUM BITARTRATE\SODIUM BICARBONATE
     Dosage: EFFERVESCENT
     Route: 054
     Dates: start: 20190125, end: 20190211
  15. TAZOBACTAM [Suspect]
     Active Substance: TAZOBACTAM
     Indication: STAPHYLOCOCCAL INFECTION
     Dosage: SEE COMMENT
     Route: 042
     Dates: start: 20190125, end: 20190130
  16. VANCOMYCINE [Suspect]
     Active Substance: VANCOMYCIN
     Indication: STAPHYLOCOCCAL INFECTION
     Dosage: 3GRAM
     Route: 042
     Dates: start: 20190125, end: 20190128
  17. GENTAMICINE [Suspect]
     Active Substance: GENTAMICIN
     Indication: STAPHYLOCOCCAL INFECTION
     Dosage: 320MILLIGRAM
     Route: 042
     Dates: start: 20190126, end: 20190127
  18. PIPERACILLINE BASE [Suspect]
     Active Substance: PIPERACILLIN SODIUM
     Indication: STAPHYLOCOCCAL INFECTION
     Dosage: SEE COMMENT
     Route: 042
     Dates: start: 20190125, end: 20190130
  19. LAROXYL 50 MG, COMPRIME PELLICULE [Concomitant]
     Active Substance: AMITRIPTYLINE HYDROCHLORIDE
     Dosage: 1DOSAGEFORM
     Route: 048
  20. SETOFILM 4 MG, FILM ORODISPERSIBLE [Concomitant]
     Dosage: 1DOSAGEFORM
     Route: 048
     Dates: start: 20190124
  21. DOLIPRANE [Concomitant]
     Active Substance: ACETAMINOPHEN
     Dosage: 4GRAM
     Route: 048
     Dates: start: 20190124
  22. OXYNORM [Concomitant]
     Active Substance: OXYCODONE HYDROCHLORIDE
     Dosage: 1 AMPOULE
     Route: 042
     Dates: start: 20190125, end: 20190125

REACTIONS (3)
  - Renal tubular necrosis [Recovered/Resolved]
  - Acute kidney injury [Recovered/Resolved]
  - Overdose [Recovered/Resolved]

NARRATIVE: CASE EVENT DATE: 20190126
